FAERS Safety Report 8230779-2 (Version None)
Quarter: 2012Q1

REPORT INFORMATION
  Report Type: 
  Country: None (occurrence: None)
  Receive Date: 20120321
  Receipt Date: 20120309
  Transmission Date: 20120608
  Serious: Yes (Other)
  Sender: FDA-Public Use
  Company Number: 20110771

PATIENT
  Age: 37 Year
  Sex: Male

DRUGS (1)
  1. HYDROXYZINE HCL [Suspect]
     Indication: ANXIETY
     Dosage: DOSE ONCE
     Dates: start: 20110301, end: 20110301

REACTIONS (10)
  - PAIN [None]
  - VEIN DISORDER [None]
  - BALANCE DISORDER [None]
  - PARAESTHESIA [None]
  - HYPOAESTHESIA [None]
  - SKIN DISCOLOURATION [None]
  - INJECTION SITE PAIN [None]
  - JOINT CONTRACTURE [None]
  - FEELING ABNORMAL [None]
  - OFF LABEL USE [None]
